FAERS Safety Report 4384603-9 (Version None)
Quarter: 2004Q2

REPORT INFORMATION
  Report Type: 
  Country: None (occurrence: None)
  Receive Date: 20040625
  Receipt Date: 20040330
  Transmission Date: 20050107
  Serious: Yes (Hospitalization)
  Sender: FDA-Public Use
  Company Number: PHBS2004JP04388

PATIENT
  Age: 47 Year
  Sex: Female
  Weight: 61 kg

DRUGS (9)
  1. SANDIMMUNE [Suspect]
     Indication: BONE MARROW TRANSPLANT
     Dosage: 350 MG/DAY
     Dates: start: 20040318, end: 20040330
  2. GRAN [Suspect]
     Indication: BONE MARROW TRANSPLANT
     Dosage: 450 UG/D
     Route: 042
     Dates: start: 20040324, end: 20040330
  3. MEROPEN [Suspect]
     Indication: PNEUMONIA BACTERIAL
     Dosage: 2 G/D
     Dates: start: 20040328, end: 20040329
  4. MAXIPIME [Suspect]
     Indication: PNEUMONIA BACTERIAL
     Dosage: 4 G/D
     Dates: start: 20040325, end: 20040328
  5. TOBRACIN [Suspect]
     Indication: PNEUMONIA BACTERIAL
     Dosage: 180 MG/D
     Dates: start: 20040328, end: 20040329
  6. CIPROXAN [Concomitant]
     Indication: PNEUMONIA BACTERIAL
     Dosage: 600 MG/D
     Dates: start: 20040329, end: 20040412
  7. ZOVIRAX [Suspect]
     Indication: INFECTION PROPHYLAXIS
     Dosage: 300 MG/D
     Dates: start: 20040316, end: 20040329
  8. FUNGUARD [Concomitant]
     Dates: start: 20040131, end: 20040329
  9. ITRIZOLE [Concomitant]
     Dosage: 200 MG/DAY
     Route: 048
     Dates: end: 20040323

REACTIONS (9)
  - ERYTHEMA [None]
  - GRAFT VERSUS HOST DISEASE [None]
  - HYPERSENSITIVITY [None]
  - PIGMENTATION DISORDER [None]
  - PNEUMONIA BACTERIAL [None]
  - PURPURA [None]
  - PYREXIA [None]
  - RASH GENERALISED [None]
  - WHITE BLOOD CELL COUNT DECREASED [None]
